FAERS Safety Report 19276143 (Version 2)
Quarter: 2021Q3

REPORT INFORMATION
  Report Type: Spontaneous
  Country: US (occurrence: US)
  Receive Date: 20210519
  Receipt Date: 20210823
  Transmission Date: 20211014
  Serious: Yes (Other)
  Sender: FDA-Public Use
  Company Number: US-MALLINCKRODT PHARMACEUTICALS-T202102163

PATIENT
  Sex: Female
  Weight: 64 kg

DRUGS (2)
  1. H.P. ACTHAR [Suspect]
     Active Substance: CORTICOTROPIN
     Indication: RHEUMATOID ARTHRITIS
     Dosage: 80 UNITS, TWO TIMES A WEEK
     Route: 058
     Dates: start: 2021, end: 2021
  2. H.P. ACTHAR [Suspect]
     Active Substance: CORTICOTROPIN
     Indication: OSTEOPOROSIS
     Dosage: 1 MILLILITER (80 UNITS), TWICE A WEEK
     Route: 058
     Dates: start: 2021

REACTIONS (7)
  - Hypotension [Recovered/Resolved]
  - Hypothyroidism [Unknown]
  - Weight increased [Not Recovered/Not Resolved]
  - Libido decreased [Unknown]
  - Hirsutism [Unknown]
  - Insomnia [Unknown]
  - Asthenia [Recovered/Resolved]

NARRATIVE: CASE EVENT DATE: 2021
